FAERS Safety Report 18900841 (Version 1)
Quarter: 2021Q1

REPORT INFORMATION
  Report Type: Spontaneous
  Country: US (occurrence: US)
  Receive Date: 20210216
  Receipt Date: 20210216
  Transmission Date: 20210420
  Serious: No
  Sender: FDA-Public Use
  Company Number: US-BAYER-2021-068258

PATIENT
  Age: 91 Year
  Sex: Female

DRUGS (4)
  1. MIRALAX [Suspect]
     Active Substance: POLYETHYLENE GLYCOL 3350
     Indication: GASTROINTESTINAL DISORDER
     Dosage: 17 G, QD
     Route: 048
  2. AVAPRO [Concomitant]
     Active Substance: IRBESARTAN
  3. VITAMIN E NOS [Concomitant]
     Active Substance: .ALPHA.-TOCOPHEROL
  4. VITAMIN B [VITAMIN B NOS] [Concomitant]

REACTIONS (2)
  - Diarrhoea [Unknown]
  - Bowel movement irregularity [Unknown]
